FAERS Safety Report 25910434 (Version 1)
Quarter: 2025Q4

REPORT INFORMATION
  Report Type: Spontaneous
  Country: US (occurrence: US)
  Receive Date: 20251012
  Receipt Date: 20251012
  Transmission Date: 20260117
  Serious: No
  Sender: ABBVIE
  Company Number: US-ABBVIE-6492020

PATIENT
  Age: 43 Year
  Sex: Female
  Weight: 68 kg

DRUGS (3)
  1. BOTOX COSMETIC [Suspect]
     Active Substance: ONABOTULINUMTOXINA
     Indication: Skin cosmetic procedure
     Dosage: TIME INTERVAL: AS NECESSARY: FREQUENCY: 4 OR 5 MONTHS
     Route: 030
     Dates: start: 2018, end: 2018
  2. BOTOX COSMETIC [Suspect]
     Active Substance: ONABOTULINUMTOXINA
     Indication: Skin cosmetic procedure
     Dosage: TIME INTERVAL: AS NECESSARY: FREQUENCY: 4 OR 5 MONTHS
     Route: 065
     Dates: start: 20250924, end: 20250924
  3. YAZ [Concomitant]
     Active Substance: DROSPIRENONE\ETHINYL ESTRADIOL
     Indication: Oral contraception
     Route: 065

REACTIONS (5)
  - Injection site pruritus [Not Recovered/Not Resolved]
  - Rash papular [Not Recovered/Not Resolved]
  - Rash maculo-papular [Recovering/Resolving]
  - Pain [Recovering/Resolving]
  - Rash pruritic [Recovering/Resolving]

NARRATIVE: CASE EVENT DATE: 20250901
